FAERS Safety Report 13798909 (Version 1)
Quarter: 2017Q3

REPORT INFORMATION
  Report Type: Spontaneous
  Country: US (occurrence: US)
  Receive Date: 20170727
  Receipt Date: 20170727
  Transmission Date: 20171127
  Serious: No
  Sender: FDA-Public Use
  Company Number: US-JNJFOC-20170606817

PATIENT
  Sex: Female

DRUGS (5)
  1. SUDAFED NASAL DECONGESTANT MAXIMUM STRENGTH [Suspect]
     Active Substance: PSEUDOEPHEDRINE HYDROCHLORIDE
     Indication: MULTIPLE ALLERGIES
     Route: 065
  2. SUDAFED NASAL DECONGESTANT MAXIMUM STRENGTH [Suspect]
     Active Substance: PSEUDOEPHEDRINE HYDROCHLORIDE
     Indication: PARANASAL SINUS DISCOMFORT
     Route: 065
  3. SUDAFED NASAL DECONGESTANT MAXIMUM STRENGTH [Suspect]
     Active Substance: PSEUDOEPHEDRINE HYDROCHLORIDE
     Indication: SNEEZING
     Route: 065
  4. SUDAFED NASAL DECONGESTANT MAXIMUM STRENGTH [Suspect]
     Active Substance: PSEUDOEPHEDRINE HYDROCHLORIDE
     Indication: RHINORRHOEA
     Route: 065
  5. SUDAFED NASAL DECONGESTANT MAXIMUM STRENGTH [Suspect]
     Active Substance: PSEUDOEPHEDRINE HYDROCHLORIDE
     Indication: COUGH
     Route: 065

REACTIONS (2)
  - Drug ineffective for unapproved indication [Unknown]
  - Drug ineffective [Unknown]
